FAERS Safety Report 8045932-0 (Version None)
Quarter: 2012Q1

REPORT INFORMATION
  Report Type: 
  Country: None (occurrence: None)
  Receive Date: 20120113
  Receipt Date: 20120103
  Transmission Date: 20120608
  Serious: Yes (Hospitalization)
  Sender: FDA-Public Use
  Company Number: FR-GLAXOSMITHKLINE-B0772589A

PATIENT
  Age: 42 Year
  Sex: Male

DRUGS (10)
  1. PIPERACILLIN AND TAZOBACTAM [Suspect]
     Indication: NOSOCOMIAL INFECTION
     Dates: start: 20110911, end: 20110911
  2. OXACILLIN [Concomitant]
     Indication: NOSOCOMIAL INFECTION
     Dates: start: 20110911
  3. TRAMADOL HCL [Suspect]
     Indication: PRODUCT USED FOR UNKNOWN INDICATION
     Route: 065
     Dates: start: 20110905, end: 20110911
  4. PREDNISONE TAB [Concomitant]
     Indication: DERMATITIS BULLOUS
     Dates: start: 20110905, end: 20110907
  5. ATARAX [Concomitant]
     Dates: start: 20110909
  6. CIPROFLOXACIN [Suspect]
     Indication: NOSOCOMIAL INFECTION
     Route: 065
     Dates: start: 20110911
  7. NEXIUM [Concomitant]
  8. LOVENOX [Concomitant]
  9. DIPROSONE [Concomitant]
     Dates: start: 20110909
  10. ZOVIRAX [Suspect]
     Indication: PRODUCT USED FOR UNKNOWN INDICATION
     Route: 065
     Dates: start: 20110907

REACTIONS (4)
  - OVERDOSE [None]
  - BLOOD CREATININE INCREASED [None]
  - AGGRESSION [None]
  - AGITATION [None]
